FAERS Safety Report 5180593-X (Version None)
Quarter: 2006Q4

REPORT INFORMATION
  Report Type: 
  Country: None (occurrence: None)
  Receive Date: 20061219
  Receipt Date: 20060905
  Transmission Date: 20070319
  Serious: No
  Sender: FDA-Public Use
  Company Number: US-AMGEN-KDL192390

PATIENT
  Sex: Male

DRUGS (3)
  1. ENBREL [Suspect]
     Indication: RHEUMATOID ARTHRITIS
     Route: 058
     Dates: start: 20060705
  2. PLAQUENIL [Concomitant]
     Dates: start: 20000701
  3. METHOTREXATE [Concomitant]
     Dates: start: 20000424

REACTIONS (2)
  - INJECTION SITE REACTION [None]
  - THERAPEUTIC RESPONSE DELAYED [None]
